FAERS Safety Report 5431549-0 (Version None)
Quarter: 2007Q3

REPORT INFORMATION
  Report Type: 
  Country: None (occurrence: None)
  Receive Date: 20070830
  Receipt Date: 20070828
  Transmission Date: 20080115
  Serious: Yes (Other)
  Sender: FDA-Public Use
  Company Number: DE-ASTRAZENECA-2007PK01726

PATIENT
  Age: 84 Year
  Sex: Female
  Weight: 53 kg

DRUGS (9)
  1. BUPIVACAINE [Suspect]
     Indication: PAIN MANAGEMENT
     Route: 008
  2. BUPIVACAINE [Suspect]
     Route: 008
  3. MORPHINE [Concomitant]
     Indication: PAIN MANAGEMENT
  4. METAMIZOL [Concomitant]
     Indication: PAIN MANAGEMENT
  5. FENTANYL [Concomitant]
     Route: 042
  6. ASPIRIN [Concomitant]
  7. SIMVASTATIN [Concomitant]
  8. TRIASE [Concomitant]
  9. ABBOKINASE [Concomitant]

REACTIONS (6)
  - CHILLS [None]
  - DISORIENTATION [None]
  - HYPERVENTILATION [None]
  - TACHYCARDIA [None]
  - TETANY [None]
  - VENTRICULAR EXTRASYSTOLES [None]
